FAERS Safety Report 4834941-8 (Version None)
Quarter: 2005Q4

REPORT INFORMATION
  Report Type: 
  Country: None (occurrence: None)
  Receive Date: 20051115
  Receipt Date: 20051104
  Transmission Date: 20060501
  Serious: Yes (Other)
  Sender: FDA-Public Use
  Company Number: KII-2005-0019398

PATIENT
  Age: 87 Year
  Sex: Female

DRUGS (4)
  1. MORPHINE SULFATE [Suspect]
     Indication: PAIN
     Dosage: SEE TEXT
     Dates: end: 20051010
  2. FENTANYL [Suspect]
     Indication: PAIN
     Dosage: SEE TEXT
     Dates: end: 20051010
  3. ACETAMINOPHEN AND HYDROCODONE BITARTRATE [Suspect]
     Indication: PAIN
     Dosage: SEE TEXT
     Dates: end: 20051010
  4. DEMEROL [Suspect]
     Indication: PAIN
     Dosage: SEE TEXT
     Dates: end: 20051010

REACTIONS (3)
  - DEPRESSED LEVEL OF CONSCIOUSNESS [None]
  - DRUG SCREEN POSITIVE [None]
  - MENTAL STATUS CHANGES [None]
